FAERS Safety Report 5101909-6 (Version None)
Quarter: 2006Q3

REPORT INFORMATION
  Report Type: 
  Country: None (occurrence: None)
  Receive Date: 20060907
  Receipt Date: 20060822
  Transmission Date: 20061208
  Serious: Yes (Hospitalization, Other)
  Sender: FDA-Public Use
  Company Number: USA0507102185

PATIENT
  Age: 20 Year
  Sex: Female

DRUGS (8)
  1. HUMALOG [Suspect]
     Indication: DIABETES MELLITUS INSULIN-DEPENDENT
     Dates: start: 20030101
  2. HUMALOG [Suspect]
     Dates: start: 19980418, end: 20030101
  3. HUAMLOG PEN (HUMALOG PEN) PEN, DISPOSABLE [Concomitant]
  4. HUAMLOG PEN (HUMALOG PEN) PEN, DISPOSABLE [Concomitant]
  5. HUAMLOG PEN (HUMALOG PEN) PEN, DISPOSABLE [Concomitant]
  6. HUAMLOG PEN (HUMALOG PEN) PEN, DISPOSABLE [Concomitant]
  7. HUAMLOG PEN (HUMALOG PEN) PEN, DISPOSABLE [Concomitant]
  8. PRENATAL VITAMINS (ASCORBIC ACID, BIOTIN, MINERALS NOS, NICOTINIC ACID [Concomitant]

REACTIONS (11)
  - ABORTION SPONTANEOUS [None]
  - BLOOD GLUCOSE INCREASED [None]
  - CAESAREAN SECTION [None]
  - DEVICE FAILURE [None]
  - DRUG EXPOSURE DURING PREGNANCY [None]
  - DRUG EXPOSURE VIA BREAST MILK [None]
  - INCORRECT DOSE ADMINISTERED [None]
  - LABOUR COMPLICATION [None]
  - PRE-ECLAMPSIA [None]
  - PREGNANCY [None]
  - RENAL IMPAIRMENT [None]
